FAERS Safety Report 17354705 (Version 1)
Quarter: 2020Q1

REPORT INFORMATION
  Report Type: Spontaneous
  Country: US (occurrence: US)
  Receive Date: 20200130
  Receipt Date: 20200130
  Transmission Date: 20200409
  Serious: No
  Sender: FDA-Public Use
  Company Number: None

PATIENT
  Age: 68 Year
  Weight: 92.99 kg

DRUGS (1)
  1. LUMASON [Suspect]
     Active Substance: SULFUR HEXAFLUORIDE
     Indication: HYPERSENSITIVITY
     Route: 042

REACTIONS (3)
  - Back pain [None]
  - Pruritus [None]
  - Flushing [None]

NARRATIVE: CASE EVENT DATE: 20200130
